FAERS Safety Report 9571931 (Version 1)
Quarter: 2013Q4

REPORT INFORMATION
  Report Type: Spontaneous
  Country: US (occurrence: US)
  Receive Date: 20131001
  Receipt Date: 20131001
  Transmission Date: 20140711
  Serious: No
  Sender: FDA-Public Use
  Company Number: US-009507513-1309USA004466

PATIENT
  Sex: Male

DRUGS (2)
  1. PEGINTRON [Suspect]
     Indication: HEPATITIS C
     Dosage: REDIPEN
     Dates: start: 20070429, end: 20080418
  2. REBETOL [Suspect]
     Indication: HEPATITIS C
     Dosage: UNK
     Route: 048
     Dates: start: 20070429, end: 20080418

REACTIONS (11)
  - Haematochezia [Unknown]
  - Cholelithiasis [Recovered/Resolved]
  - Panic attack [Unknown]
  - Ulcer [Unknown]
  - Stress [Unknown]
  - Blood test abnormal [Unknown]
  - Abdominal pain upper [Unknown]
  - Anxiety [Unknown]
  - Headache [Unknown]
  - Abdominal pain [Unknown]
  - Sinusitis [Unknown]
